FAERS Safety Report 8363951-1 (Version None)
Quarter: 2012Q2

REPORT INFORMATION
  Report Type: 
  Country: None (occurrence: None)
  Receive Date: 20120515
  Receipt Date: 20120515
  Transmission Date: 20120825
  Serious: Yes (Other)
  Sender: FDA-Public Use
  Company Number: None

PATIENT
  Age: 71 Year
  Sex: Female
  Weight: 59.8748 kg

DRUGS (6)
  1. SODIUM HYALURONATE [Suspect]
     Indication: PAIN IN EXTREMITY
     Dates: start: 20120316
  2. SODIUM HYALURONATE [Suspect]
     Indication: ARTHRALGIA
     Dates: start: 20120316
  3. SODIUM HYALURONATE [Suspect]
     Indication: PAIN IN EXTREMITY
     Dates: start: 20120330
  4. SODIUM HYALURONATE [Suspect]
     Indication: ARTHRALGIA
     Dates: start: 20120330
  5. SODIUM HYALURONATE [Suspect]
     Indication: PAIN IN EXTREMITY
     Dates: start: 20120323
  6. SODIUM HYALURONATE [Suspect]
     Indication: ARTHRALGIA
     Dates: start: 20120323

REACTIONS (5)
  - DECREASED APPETITE [None]
  - GAIT DISTURBANCE [None]
  - ABDOMINAL DISCOMFORT [None]
  - PAIN IN EXTREMITY [None]
  - JOINT SWELLING [None]
